FAERS Safety Report 18499919 (Version 9)
Quarter: 2023Q2

REPORT INFORMATION
  Report Type: Report from Study
  Country: CO (occurrence: CO)
  Receive Date: 20201112
  Receipt Date: 20230630
  Transmission Date: 20230722
  Serious: Yes (Other)
  Sender: FDA-Public Use
  Company Number: CO-ABBVIE-20K-036-3647696-00

PATIENT
  Age: 52 Year
  Sex: Female
  Weight: 56 kg

DRUGS (5)
  1. HUMIRA [Interacting]
     Active Substance: ADALIMUMAB
     Indication: Colitis ulcerative
     Route: 058
     Dates: start: 20170222
  2. HUMIRA [Interacting]
     Active Substance: ADALIMUMAB
  3. COVID-19 VACCINE NOS [Suspect]
     Active Substance: COVID-19 VACCINE NOS
     Indication: COVID-19 immunisation
     Dosage: TIME INTERVAL: 1 TOTAL
     Route: 030
     Dates: start: 20210607, end: 20210607
  4. MESALAMINE [Concomitant]
     Active Substance: MESALAMINE
     Indication: Colitis ulcerative
     Dosage: 2 GRAMS IN THE MORNING AND AT NIGHT
     Route: 048
  5. MESALAMINE [Concomitant]
     Active Substance: MESALAMINE
     Indication: Colitis ulcerative

REACTIONS (24)
  - Haematochezia [Not Recovered/Not Resolved]
  - Back pain [Recovered/Resolved]
  - Anorectal disorder [Not Recovered/Not Resolved]
  - Choking [Recovered/Resolved]
  - Colitis ulcerative [Recovered/Resolved]
  - Colitis ulcerative [Recovered/Resolved]
  - Aphonia [Not Recovered/Not Resolved]
  - Asthenia [Not Recovered/Not Resolved]
  - Immunodeficiency [Not Recovered/Not Resolved]
  - General physical health deterioration [Not Recovered/Not Resolved]
  - Anal erythema [Unknown]
  - Discouragement [Not Recovered/Not Resolved]
  - Muscular weakness [Not Recovered/Not Resolved]
  - Dizziness [Not Recovered/Not Resolved]
  - Immune system disorder [Not Recovered/Not Resolved]
  - Suspected COVID-19 [Recovered/Resolved]
  - Influenza like illness [Recovered/Resolved]
  - COVID-19 [Recovered/Resolved]
  - Abdominal discomfort [Not Recovered/Not Resolved]
  - Abdominal pain upper [Not Recovered/Not Resolved]
  - Diarrhoea [Recovered/Resolved]
  - Vomiting [Recovered/Resolved]
  - Headache [Recovered/Resolved]
  - Pain [Recovered/Resolved]

NARRATIVE: CASE EVENT DATE: 20201029
